FAERS Safety Report 9695768 (Version 1)
Quarter: 2013Q4

REPORT INFORMATION
  Report Type: Spontaneous
  Country: US (occurrence: None)
  Receive Date: 20131118
  Receipt Date: 20131118
  Transmission Date: 20140711
  Serious: No
  Sender: FDA-Public Use
  Company Number: None

PATIENT
  Age: 47 Year
  Sex: Male

DRUGS (1)
  1. MIRVASO [Suspect]
     Indication: ROSACEA
     Dosage: APPROXI 1 G ONCE DAILY APPLIED TO A SURFACE USUALLY THE SKIN
     Dates: start: 20131112, end: 20131113

REACTIONS (2)
  - Erythema [None]
  - Inflammation [None]
